FAERS Safety Report 7134401-8 (Version None)
Quarter: 2010Q4

REPORT INFORMATION
  Report Type: 
  Country: None (occurrence: None)
  Receive Date: 20101203
  Receipt Date: 20101118
  Transmission Date: 20110411
  Serious: Yes (Other)
  Sender: FDA-Public Use
  Company Number: PHHY2010US77775

PATIENT
  Sex: Female

DRUGS (16)
  1. EXJADE [Suspect]
     Indication: MYELODYSPLASTIC SYNDROME
     Dosage: 1500 MG, QD
     Route: 048
     Dates: start: 20101113
  2. EXJADE [Suspect]
     Dosage: 1000 MG, QD
     Route: 048
     Dates: start: 20101115
  3. METOPROLOL [Concomitant]
     Dosage: 75 MG, UNK
  4. SIMVASTATIN [Concomitant]
     Dosage: UNK
  5. LYRICA [Concomitant]
     Dosage: 150 MG, BID
  6. PREDNISONE [Concomitant]
     Dosage: 10 MG, UNK
  7. PRILOSEC [Concomitant]
     Dosage: 20 MG, UNK
  8. TRAMADOL HCL [Concomitant]
     Dosage: 25 MG, BID
  9. DIGOXIN [Concomitant]
     Dosage: UNK
  10. CALCIUM [Concomitant]
     Dosage: UNK
  11. FISH OIL [Concomitant]
     Dosage: UNK
  12. MULTI-VITAMINS [Concomitant]
     Dosage: UNK
  13. TYLENOL WITH ULTRAM [Concomitant]
     Dosage: UNK
  14. VITAMIN D [Concomitant]
     Dosage: UNK
  15. ESTROVEN [Concomitant]
     Dosage: UNK
  16. VIDAZA [Concomitant]
     Indication: MYELODYSPLASTIC SYNDROME
     Dosage: UNK, EVERY6 WEEK FOR 7 DAYS
     Route: 042

REACTIONS (4)
  - DIARRHOEA [None]
  - HAEMORRHAGE URINARY TRACT [None]
  - VISUAL IMPAIRMENT [None]
  - VITREOUS FLOATERS [None]
